FAERS Safety Report 8827337 (Version 1)
Quarter: 2012Q4

REPORT INFORMATION
  Report Type: 
  Country: US (occurrence: US)
  Receive Date: 20121005
  Receipt Date: 20121005
  Transmission Date: 20130627
  Serious: No
  Sender: FDA-Public Use
  Company Number: US-BRISTOL-MYERS SQUIBB COMPANY-15967581

PATIENT
  Age: 79 Year
  Sex: Female
  Weight: 82 kg

DRUGS (4)
  1. AVAPRO [Suspect]
     Indication: HYPERTENSION
     Dosage: 300/25 for 9 months. Also 300/12.5
Pills.
Exp date:08Sep12
     Route: 048
     Dates: start: 20110909
  2. HYDROCHLOROTHIAZIDE [Suspect]
  3. CRESTOR [Concomitant]
  4. MULTIVITAMINS [Concomitant]

REACTIONS (3)
  - Rash [Unknown]
  - Hypertension [Unknown]
  - Urine output decreased [Unknown]
